FAERS Safety Report 16851635 (Version 1)
Quarter: 2019Q3

REPORT INFORMATION
  Report Type: Spontaneous
  Country: NO (occurrence: NO)
  Receive Date: 20190925
  Receipt Date: 20190925
  Transmission Date: 20191005
  Serious: Yes (Disabling, Other)
  Sender: FDA-Public Use
  Company Number: NO-BAYER-200514433GDS

PATIENT
  Age: 25 Year
  Sex: Male

DRUGS (3)
  1. AZITROMAX [Suspect]
     Active Substance: AZITHROMYCIN ANHYDROUS
     Indication: PROSTATITIS
     Dosage: 500 MG, QD
     Route: 048
     Dates: start: 20011116, end: 200112
  2. CARDURAN [Suspect]
     Active Substance: DOXAZOSIN MESYLATE
     Indication: PROSTATITIS
     Dosage: 400 MG, ONCE
     Route: 048
     Dates: start: 20011116, end: 200112
  3. CIPROFLOXACIN. [Suspect]
     Active Substance: CIPROFLOXACIN
     Indication: PROSTATITIS
     Dosage: 1000 MG (DAILY DOSE), BID, ORAL
     Route: 048
     Dates: start: 20011016

REACTIONS (30)
  - Amnesia [Unknown]
  - Arrhythmia [Unknown]
  - Muscle spasms [Unknown]
  - Chronic fatigue syndrome [Not Recovered/Not Resolved]
  - Anal incontinence [Unknown]
  - Vision blurred [Unknown]
  - Prostatitis [Unknown]
  - Night sweats [Unknown]
  - Nausea [Unknown]
  - Tinnitus [Unknown]
  - Asthenia [Unknown]
  - Fatigue [Unknown]
  - Disturbance in attention [Unknown]
  - Headache [Unknown]
  - Flatulence [Unknown]
  - Palpitations [Unknown]
  - Tremor [Unknown]
  - Epistaxis [Unknown]
  - Anal haemorrhage [None]
  - Gastrointestinal disorder [Unknown]
  - Pollakiuria [Unknown]
  - Tension headache [Unknown]
  - Dizziness [Unknown]
  - Diarrhoea [Unknown]
  - Sleep disorder [Unknown]
  - Abdominal pain [Unknown]
  - Depressed mood [Unknown]
  - Nasopharyngitis [Unknown]
  - Abnormal dreams [Unknown]
  - Alopecia [Unknown]
